FAERS Safety Report 19423187 (Version 1)
Quarter: 2021Q2

REPORT INFORMATION
  Report Type: Spontaneous
  Country: US (occurrence: US)
  Receive Date: 20210616
  Receipt Date: 20210616
  Transmission Date: 20210717
  Serious: No
  Sender: FDA-Public Use
  Company Number: US-EYEVANCE PHARMACEUTICALS-2021EYE00044

PATIENT

DRUGS (1)
  1. ZERVIATE [Suspect]
     Active Substance: CETIRIZINE HYDROCHLORIDE
     Dosage: BY EYE
     Route: 047

REACTIONS (2)
  - Paranasal sinus discomfort [Recovered/Resolved]
  - Paranasal sinus hypersecretion [Recovered/Resolved]
